FAERS Safety Report 6811888-9 (Version None)
Quarter: 2010Q3

REPORT INFORMATION
  Report Type: 
  Country: None (occurrence: None)
  Receive Date: 20100701
  Receipt Date: 20100617
  Transmission Date: 20110219
  Serious: Yes (Other)
  Sender: FDA-Public Use
  Company Number: PHHY2010FR32245

PATIENT
  Sex: Female

DRUGS (5)
  1. ACLASTA [Suspect]
     Indication: OSTEOPOROSIS POSTMENOPAUSAL
     Dosage: UNK
     Dates: start: 20100426
  2. COAPROVEL [Concomitant]
     Indication: HYPERTENSION
     Dosage: ONCE A DAY
  3. ACETAMINOPHEN [Concomitant]
     Dosage: 1000 MG, QD
  4. LYRICA [Concomitant]
     Dosage: 50 MG, BID
  5. IDEOS [Concomitant]
     Dosage: TWICE A DAY

REACTIONS (9)
  - ARTHRALGIA [None]
  - BLOOD CALCIUM INCREASED [None]
  - C-REACTIVE PROTEIN INCREASED [None]
  - CHILLS [None]
  - JOINT EFFUSION [None]
  - JOINT SWELLING [None]
  - NAUSEA [None]
  - PAIN [None]
  - RED BLOOD CELL SEDIMENTATION RATE INCREASED [None]
